FAERS Safety Report 4840815-9 (Version None)
Quarter: 2005Q4

REPORT INFORMATION
  Report Type: 
  Country: None (occurrence: None)
  Receive Date: 20051130
  Receipt Date: 20050317
  Transmission Date: 20060501
  Serious: Yes (Hospitalization)
  Sender: FDA-Public Use
  Company Number: US-BRISTOL-MYERS SQUIBB COMPANY-12901872

PATIENT
  Age: 74 Year
  Sex: Female

DRUGS (1)
  1. AVALIDE [Suspect]
     Dosage: 150 MG/12.5 MG HCTZ

REACTIONS (1)
  - HYPONATRAEMIA [None]
